FAERS Safety Report 8045688-1 (Version None)
Quarter: 2012Q1

REPORT INFORMATION
  Report Type: 
  Country: None (occurrence: None)
  Receive Date: 20120113
  Receipt Date: 20120104
  Transmission Date: 20120608
  Serious: Yes (Other)
  Sender: FDA-Public Use
  Company Number: DE-UCBSA-046722

PATIENT
  Age: 80 Year
  Sex: Male
  Weight: 96 kg

DRUGS (5)
  1. NEUPRO [Suspect]
     Route: 062
     Dates: start: 20110201, end: 20110101
  2. RESTEX [Concomitant]
     Dosage: 100 MG/25 MG, 1, FOR APPROX. 3 YEARS
  3. NEUPRO [Suspect]
     Indication: RESTLESS LEGS SYNDROME
     Route: 062
     Dates: start: 20110101
  4. NEUPRO [Suspect]
     Route: 062
     Dates: start: 20110808, end: 20110101
  5. RESTEX [Concomitant]
     Dosage: 100 MG/25 MG, 1, FOR APPROX. 3 YEARS

REACTIONS (3)
  - DIZZINESS [None]
  - PANIC REACTION [None]
  - DRUG INEFFECTIVE [None]
